FAERS Safety Report 6410954-X (Version None)
Quarter: 2009Q4

REPORT INFORMATION
  Report Type: 
  Country: None (occurrence: None)
  Receive Date: 20091020
  Receipt Date: 20091020
  Transmission Date: 20100525
  Serious: Yes (Hospitalization)
  Sender: FDA-Public Use
  Company Number: None

PATIENT
  Age: 74 Year
  Sex: Female
  Weight: 59.4212 kg

DRUGS (2)
  1. TRASTUZMAB [Suspect]
     Indication: BREAST CANCER METASTATIC
     Dosage: 6MG/KG EVERY 3 WEEKS IV
     Route: 042
     Dates: start: 20090901, end: 20091001
  2. TRASTUZMAB [Suspect]
     Indication: METASTASES TO LUNG
     Dosage: 6MG/KG EVERY 3 WEEKS IV
     Route: 042
     Dates: start: 20090901, end: 20091001

REACTIONS (3)
  - CHILLS [None]
  - DYSPNOEA [None]
  - NAIL DISORDER [None]
